FAERS Safety Report 13046196 (Version 1)
Quarter: 2016Q4

REPORT INFORMATION
  Report Type: Spontaneous
  Country: US (occurrence: US)
  Receive Date: 20161220
  Receipt Date: 20161220
  Transmission Date: 20170207
  Serious: No
  Sender: FDA-Public Use
  Company Number: US-PFIZER INC-2016577975

PATIENT
  Age: 69 Year
  Sex: Female

DRUGS (4)
  1. PREMARIN [Suspect]
     Active Substance: ESTROGENS, CONJUGATED
     Dosage: 3 MG, 1X/DAY
  2. NEXIUM [Suspect]
     Active Substance: ESOMEPRAZOLE MAGNESIUM
     Dosage: 20 MG, 1X/DAY
  3. COMPAZINE [Suspect]
     Active Substance: PROCHLORPERAZINE MALEATE
  4. ESTRING [Suspect]
     Active Substance: ESTRADIOL
     Dosage: 2 MG, UNK, (INSERT 1 VAGINAL RING)

REACTIONS (1)
  - Drug hypersensitivity [Unknown]
